FAERS Safety Report 5392625-4 (Version None)
Quarter: 2007Q3

REPORT INFORMATION
  Report Type: 
  Country: None (occurrence: None)
  Receive Date: 20070720
  Receipt Date: 20070712
  Transmission Date: 20080115
  Serious: Yes (Hospitalization)
  Sender: FDA-Public Use
  Company Number: FR-MERCK-0707FRA00034

PATIENT
  Age: 37 Year
  Sex: Male

DRUGS (7)
  1. FOSAMAX [Suspect]
     Indication: OSTEOPOROSIS
     Route: 048
     Dates: end: 20070101
  2. PREDNISONE [Concomitant]
     Indication: JUVENILE ARTHRITIS
     Route: 048
  3. METHOTREXATE [Concomitant]
     Route: 048
  4. MORPHINE SULFATE [Concomitant]
     Route: 065
  5. OMEPRAZOLE [Concomitant]
     Route: 048
  6. FOLIC ACID [Concomitant]
     Route: 048
  7. CALCIUM CARBONATE AND CHOLECALCIFEROL [Concomitant]
     Route: 048
     Dates: end: 20070101

REACTIONS (2)
  - OSTEONECROSIS [None]
  - TOOTH LOSS [None]
